FAERS Safety Report 20732204 (Version 3)
Quarter: 2022Q2

REPORT INFORMATION
  Report Type: Spontaneous
  Country: US (occurrence: US)
  Receive Date: 20220420
  Receipt Date: 20220602
  Transmission Date: 20220721
  Serious: No
  Sender: FDA-Public Use
  Company Number: US-PFIZER INC-202200390716

PATIENT
  Age: 37 Year
  Sex: Female

DRUGS (3)
  1. IBRANCE [Suspect]
     Active Substance: PALBOCICLIB
     Dosage: UNK
     Dates: start: 20220301
  2. IBRANCE [Suspect]
     Active Substance: PALBOCICLIB
     Dosage: UNK, CYCLIC
  3. LETROZOLE [Suspect]
     Active Substance: LETROZOLE
     Dosage: UNK

REACTIONS (7)
  - Fatigue [Unknown]
  - Hot flush [Not Recovered/Not Resolved]
  - Stomatitis [Recovering/Resolving]
  - Pruritus [Recovering/Resolving]
  - Infection [Unknown]
  - Nausea [Recovering/Resolving]
  - Condition aggravated [Unknown]
